FAERS Safety Report 4269533-5 (Version None)
Quarter: 2004Q1

REPORT INFORMATION
  Report Type: 
  Country: None (occurrence: None)
  Receive Date: 20040113
  Receipt Date: 20040105
  Transmission Date: 20041129
  Serious: Yes (Hospitalization)
  Sender: FDA-Public Use
  Company Number: US-BRISTOL-MYERS SQUIBB COMPANY-12468682

PATIENT
  Age: 72 Year
  Sex: Male
  Weight: 57 kg

DRUGS (10)
  1. PACLITAXEL [Suspect]
     Indication: NON-SMALL CELL LUNG CANCER
     Dosage: DOSAGE: 225 MG/M2  CYCLE 1: 18-NOV-2003
     Route: 042
     Dates: start: 20031209, end: 20031209
  2. CARBOPLATIN [Suspect]
     Indication: NON-SMALL CELL LUNG CANCER
     Dosage: AUC = 6  CYCLE 1: 18-NOV-2003
     Route: 042
     Dates: start: 20031209, end: 20031209
  3. COZAAR [Concomitant]
  4. AMBIEN [Concomitant]
  5. ATIVAN [Concomitant]
     Indication: PREMEDICATION
  6. KYTRIL [Concomitant]
     Indication: PREMEDICATION
  7. DECADRON [Concomitant]
     Indication: PREMEDICATION
  8. BENADRYL [Concomitant]
     Indication: PREMEDICATION
  9. TAGAMET [Concomitant]
     Indication: PREMEDICATION
  10. ZOFRAN [Concomitant]
     Indication: PREMEDICATION

REACTIONS (6)
  - ANOREXIA [None]
  - CONSTIPATION [None]
  - DEHYDRATION [None]
  - DIARRHOEA [None]
  - WEIGHT DECREASED [None]
  - WHITE BLOOD CELL COUNT INCREASED [None]
